FAERS Safety Report 5078856-1 (Version None)
Quarter: 2006Q3

REPORT INFORMATION
  Report Type: 
  Country: None (occurrence: None)
  Receive Date: 20060809
  Receipt Date: 20060725
  Transmission Date: 20061208
  Serious: Yes (Life-Threatening, Hospitalization)
  Sender: FDA-Public Use
  Company Number: 225611

PATIENT
  Age: 58 Year
  Sex: Female
  Weight: 71.2 kg

DRUGS (9)
  1. AVASTIN [Suspect]
     Indication: COLON CANCER
     Dosage: 357 MG, Q2W, INTRAVENOUS
     Route: 042
     Dates: start: 20051130, end: 20060518
  2. OXALIPLATIN (OXALIPLATIN) [Suspect]
     Indication: COLON CANCER
     Dosage: 134 MG, Q2W, INTRAVENOUS
     Route: 042
     Dates: start: 20051130, end: 20060518
  3. FLUOROURACIL [Suspect]
     Indication: COLON CANCER
     Dosage: 537 MG, Q2W, INTRAVENOUS
     Route: 042
     Dates: start: 20051130, end: 20060518
  4. LEUCOVORIN CALCIUM [Suspect]
     Indication: COLON CANCER
     Dosage: 358 MG, Q2W, INTRAVENOUS
     Route: 042
     Dates: start: 20051130, end: 20060518
  5. PREMARIN [Concomitant]
  6. ATENOLOL [Concomitant]
  7. LISINOPRIL [Concomitant]
  8. ADVIL [Concomitant]
  9. UNSPECIFIED DRUG (GENERIC COMPONENT (S)) [Concomitant]

REACTIONS (8)
  - DIARRHOEA [None]
  - FLUID INTAKE REDUCED [None]
  - HAEMODIALYSIS [None]
  - HAEMOGLOBIN DECREASED [None]
  - NAUSEA [None]
  - PLATELET COUNT DECREASED [None]
  - RENAL FAILURE ACUTE [None]
  - RENAL TUBULAR NECROSIS [None]
